FAERS Safety Report 16352457 (Version 2)
Quarter: 2019Q3

REPORT INFORMATION
  Report Type: Spontaneous
  Country: NO (occurrence: NO)
  Receive Date: 20190524
  Receipt Date: 20190807
  Transmission Date: 20191004
  Serious: Yes (Death, Other)
  Sender: FDA-Public Use
  Company Number: NO-BAYER-2019-096371

PATIENT
  Age: 18 Year
  Sex: Male

DRUGS (5)
  1. XOFIGO [Suspect]
     Active Substance: RADIUM RA-223 DICHLORIDE
     Indication: OSTEOSARCOMA
     Dosage: 3850 KBQ, QD
     Route: 013
     Dates: start: 20170127, end: 20170127
  2. XOFIGO [Suspect]
     Active Substance: RADIUM RA-223 DICHLORIDE
     Indication: OSTEOSARCOMA
     Dosage: UNK
     Route: 013
     Dates: start: 20180529, end: 20180529
  3. XOFIGO [Suspect]
     Active Substance: RADIUM RA-223 DICHLORIDE
     Indication: OSTEOSARCOMA
     Dosage: UNK
     Route: 013
     Dates: start: 20180417, end: 20180417
  4. XOFIGO [Suspect]
     Active Substance: RADIUM RA-223 DICHLORIDE
     Indication: OSTEOSARCOMA
     Dosage: UNK
     Route: 013
     Dates: start: 20180628, end: 20180628
  5. SAMARIUM SODIUM DISULFOSALICYLATE [Concomitant]
     Dosage: 70 MCU

REACTIONS (5)
  - Osteosarcoma metastatic [Fatal]
  - Product use issue [None]
  - Off label use [None]
  - Osteosarcoma recurrent [None]
  - Product use in unapproved indication [None]

NARRATIVE: CASE EVENT DATE: 20180725
